FAERS Safety Report 21793176 (Version 2)
Quarter: 2023Q1

REPORT INFORMATION
  Report Type: Spontaneous
  Country: US (occurrence: US)
  Receive Date: 20221229
  Receipt Date: 20230303
  Transmission Date: 20230418
  Serious: No
  Sender: FDA-Public Use
  Company Number: US-BAUSCHBL-2022BNL003026

PATIENT
  Sex: Female

DRUGS (2)
  1. ALAWAY PRESERVATIVE FREE [Suspect]
     Active Substance: KETOTIFEN FUMARATE
     Indication: Eye pruritus
     Route: 047
     Dates: start: 20221218, end: 20221220
  2. ALAWAY PRESERVATIVE FREE [Suspect]
     Active Substance: KETOTIFEN FUMARATE
     Indication: Ocular hyperaemia

REACTIONS (6)
  - Condition aggravated [Unknown]
  - Purulent discharge [Not Recovered/Not Resolved]
  - Instillation site swelling [Not Recovered/Not Resolved]
  - Periorbital swelling [Not Recovered/Not Resolved]
  - Instillation site pruritus [Unknown]
  - Instillation site erythema [Unknown]

NARRATIVE: CASE EVENT DATE: 20221219
